FAERS Safety Report 5072366-3 (Version None)
Quarter: 2006Q3

REPORT INFORMATION
  Report Type: 
  Country: None (occurrence: None)
  Receive Date: 20060802
  Receipt Date: 20060719
  Transmission Date: 20061208
  Serious: Yes (Death, Other)
  Sender: FDA-Public Use
  Company Number: 2006-BP-08347RO

PATIENT
  Age: 46 Year
  Sex: Male
  Weight: 80 kg

DRUGS (11)
  1. FLUCONAZOLE [Suspect]
     Indication: FUNGAL INFECTION
     Dosage: 50 MG/DAY (50 MG), PO
     Route: 048
  2. LIDOCAINE [Suspect]
     Dosage: SPRAY (NR), TO
     Route: 061
  3. METOCLOPRAMIDE [Suspect]
     Dosage: 20 MG TID (20 MG), PR
  4. DURAGESIC-100 [Suspect]
     Indication: PAIN
     Dosage: 100 TO 150 MICROGRAM/H , TO
     Route: 061
  5. MORPHINE [Concomitant]
  6. DICLOFENAC [Concomitant]
  7. ACETAMINOPHEN [Concomitant]
  8. OXAZEPAM [Concomitant]
  9. ZOLPIDEM [Concomitant]
  10. NYSTATINE (NYSTATIN) [Concomitant]
  11. LACTULOSE [Concomitant]

REACTIONS (10)
  - BRAIN OEDEMA [None]
  - CARDIO-RESPIRATORY ARREST [None]
  - DRUG INTERACTION [None]
  - DRUG LEVEL INCREASED [None]
  - DRUG TOXICITY [None]
  - DYSPHAGIA [None]
  - ORAL FUNGAL INFECTION [None]
  - PULMONARY CONGESTION [None]
  - RESPIRATORY DEPRESSION [None]
  - SHOCK [None]
